FAERS Safety Report 16057601 (Version 1)
Quarter: 2019Q1

REPORT INFORMATION
  Report Type: Spontaneous
  Country: US (occurrence: US)
  Receive Date: 20190311
  Receipt Date: 20190311
  Transmission Date: 20190418
  Serious: No
  Sender: FDA-Public Use
  Company Number: US-SA-2019SA063742

PATIENT
  Age: 29 Year
  Sex: Female
  Weight: 70.3 kg

DRUGS (14)
  1. ACETAMINOPHEN. [Concomitant]
     Active Substance: ACETAMINOPHEN
     Indication: PREMEDICATION
     Dosage: 650 MG
     Route: 048
     Dates: start: 20180614
  2. HEPARIN [Concomitant]
     Active Substance: HEPARIN SODIUM
     Dosage: 100 UN/ML
     Route: 042
     Dates: start: 20180614
  3. LORATADINE. [Concomitant]
     Active Substance: LORATADINE
     Indication: PREMEDICATION
     Dosage: 10 MG
     Route: 048
     Dates: start: 20180614
  4. SODIUM CHLORIDE. [Concomitant]
     Active Substance: SODIUM CHLORIDE
     Dosage: 0.9 %
     Route: 042
     Dates: start: 20180614
  5. DIPHENHYDRAMINE. [Concomitant]
     Active Substance: DIPHENHYDRAMINE
     Indication: ANAPHYLACTIC REACTION
     Dosage: 250 MG
     Route: 048
     Dates: start: 20180614
  6. NORMAL SALINE [Concomitant]
     Active Substance: SODIUM CHLORIDE
     Dosage: 0.9 %
     Route: 042
     Dates: start: 20180614
  7. FABRAZYME [Suspect]
     Active Substance: AGALSIDASE BETA
     Indication: FABRY^S DISEASE
     Dosage: 1 MG/KG, QOW
     Dates: start: 20180611
  8. STERILE WATER [Concomitant]
     Active Substance: WATER
     Dosage: 1 DF
     Route: 042
     Dates: start: 20180616
  9. NAPROXEN. [Concomitant]
     Active Substance: NAPROXEN
     Dosage: 250 MG, PRN
     Route: 048
     Dates: start: 20180607
  10. HYDROCORTISONE. [Concomitant]
     Active Substance: HYDROCORTISONE
     Dosage: 100 MG
     Route: 042
     Dates: start: 20180614
  11. ACETAMINOPHEN AND CODEINE [Concomitant]
     Active Substance: ACETAMINOPHEN\CODEINE PHOSPHATE
     Dosage: 1 DF, BID
     Route: 048
     Dates: start: 20180607
  12. TRAMADOL. [Concomitant]
     Active Substance: TRAMADOL
     Dosage: 50 MG, PRN
     Route: 048
     Dates: start: 20180607
  13. EPINEPHRINE. [Concomitant]
     Active Substance: EPINEPHRINE
     Indication: ANAPHYLACTIC REACTION
     Dosage: 0.3 MG
     Route: 030
     Dates: start: 20180614
  14. CLARITIN-D NOS [Concomitant]
     Active Substance: LORATADINE\PSEUDOEPHEDRINE SULFATE
     Dosage: 1 UNK, Q12H
     Route: 048
     Dates: start: 20180607

REACTIONS (1)
  - Gastroenteritis viral [Unknown]
